FAERS Safety Report 13581051 (Version 3)
Quarter: 2017Q3

REPORT INFORMATION
  Report Type: Spontaneous
  Country: US (occurrence: US)
  Receive Date: 20170525
  Receipt Date: 20170707
  Transmission Date: 20171127
  Serious: No
  Sender: FDA-Public Use
  Company Number: US-PFIZER INC-2017227782

PATIENT
  Age: 55 Year
  Sex: Female
  Weight: 97.52 kg

DRUGS (1)
  1. LYRICA [Suspect]
     Active Substance: PREGABALIN
     Indication: NEUROPATHY PERIPHERAL
     Dosage: 50 MG, 2X/DAY (MORNING AND NIGHT)
     Dates: start: 201705

REACTIONS (5)
  - Feeling abnormal [Unknown]
  - Feeling of body temperature change [Unknown]
  - Drug effect incomplete [Not Recovered/Not Resolved]
  - Restless legs syndrome [Unknown]
  - Burning sensation [Unknown]

NARRATIVE: CASE EVENT DATE: 201705
